FAERS Safety Report 26109361 (Version 1)
Quarter: 2025Q4

REPORT INFORMATION
  Report Type: Report from Study
  Country: EU (occurrence: EU)
  Receive Date: 20251201
  Receipt Date: 20251201
  Transmission Date: 20260117
  Serious: Yes (Other)
  Sender: TAKEDA
  Company Number: EU-TAKEDA-2025TUS108090

PATIENT
  Age: 65 Year

DRUGS (1)
  1. APADAMTASE ALFA [Suspect]
     Active Substance: APADAMTASE ALFA
     Indication: Thrombotic thrombocytopenic purpura
     Dosage: UNK

REACTIONS (1)
  - Thrombocytopenia [Unknown]
